FAERS Safety Report 5380601-7 (Version None)
Quarter: 2007Q2

REPORT INFORMATION
  Report Type: 
  Country: None (occurrence: None)
  Receive Date: 20070530
  Receipt Date: 20070305
  Transmission Date: 20071010
  Serious: Yes (Hospitalization)
  Sender: FDA-Public Use
  Company Number: 2007PV031013

PATIENT
  Age: 66 Year
  Sex: Male
  Weight: 93.441 kg

DRUGS (10)
  1. BYETTA [Suspect]
     Indication: DIABETES MELLITUS NON-INSULIN-DEPENDENT
     Dosage: 5 MCG;BID;SC
     Route: 058
     Dates: start: 20070208, end: 20070201
  2. METFORMIN HCL [Suspect]
     Indication: DIABETES MELLITUS NON-INSULIN-DEPENDENT
     Dates: end: 20070201
  3. GLYBURIDE [Concomitant]
  4. MOBIC [Concomitant]
  5. DIOVAN [Concomitant]
  6. LASIX [Concomitant]
  7. POTASIUM [Concomitant]
  8. ZETIA [Concomitant]
  9. METHOTREXATE [Concomitant]
  10. STEROIDS (UNSPECIFIED) [Concomitant]

REACTIONS (5)
  - ASTHENIA [None]
  - DEHYDRATION [None]
  - NAUSEA [None]
  - RENAL FAILURE [None]
  - VOMITING [None]
